FAERS Safety Report 4566174-7 (Version None)
Quarter: 2005Q1

REPORT INFORMATION
  Report Type: 
  Country: None (occurrence: None)
  Receive Date: 20050201
  Receipt Date: 20050120
  Transmission Date: 20050727
  Serious: Yes (Hospitalization)
  Sender: FDA-Public Use
  Company Number: US-JNJFOC-20050105802

PATIENT
  Sex: Female
  Weight: 60.33 kg

DRUGS (4)
  1. INFLIXIMAB [Suspect]
     Indication: RHEUMATOID ARTHRITIS
     Route: 042
  2. AMITRIPTYLINE [Concomitant]
     Dosage: NIGHTLY
  3. ALTRACE [Concomitant]
  4. PREVACID [Concomitant]

REACTIONS (2)
  - DIVERTICULITIS [None]
  - GASTROENTERITIS [None]
